FAERS Safety Report 5562296-2 (Version None)
Quarter: 2007Q4

REPORT INFORMATION
  Report Type: 
  Country: None (occurrence: None)
  Receive Date: 20071215
  Receipt Date: 20070918
  Transmission Date: 20080405
  Serious: No
  Sender: FDA-Public Use
  Company Number: US-AMGEN-US243896

PATIENT
  Sex: Female

DRUGS (2)
  1. ARANESP [Suspect]
     Indication: RENAL FAILURE CHRONIC
     Route: 065
     Dates: start: 20070824, end: 20070824
  2. CRESTOR [Concomitant]
     Route: 065

REACTIONS (5)
  - ARTHRALGIA [None]
  - FEELING JITTERY [None]
  - HEADACHE [None]
  - INJECTION SITE IRRITATION [None]
  - SINUSITIS [None]
